FAERS Safety Report 16210831 (Version 1)
Quarter: 2019Q2

REPORT INFORMATION
  Report Type: Spontaneous
  Country: US (occurrence: US)
  Receive Date: 20190418
  Receipt Date: 20190418
  Transmission Date: 20190711
  Serious: No
  Sender: FDA-Public Use
  Company Number: US-TEVA-2019-US-1040459

PATIENT
  Age: 64 Year
  Sex: Female

DRUGS (1)
  1. AJOVY [Suspect]
     Active Substance: FREMANEZUMAB-VFRM
     Indication: MIGRAINE
     Dates: start: 20190306, end: 201903

REACTIONS (10)
  - Urticaria [Unknown]
  - Pain [Not Recovered/Not Resolved]
  - Stomatitis [Unknown]
  - Glossodynia [Not Recovered/Not Resolved]
  - Headache [Not Recovered/Not Resolved]
  - Aphthous ulcer [Unknown]
  - Pruritus [Unknown]
  - Oropharyngeal discomfort [Not Recovered/Not Resolved]
  - Taste disorder [Unknown]
  - Headache [Recovering/Resolving]

NARRATIVE: CASE EVENT DATE: 201903
